FAERS Safety Report 5131977-7 (Version None)
Quarter: 2006Q4

REPORT INFORMATION
  Report Type: 
  Country: None (occurrence: None)
  Receive Date: 20061017
  Receipt Date: 20061006
  Transmission Date: 20070319
  Serious: Yes (Hospitalization)
  Sender: FDA-Public Use
  Company Number: 2005P1000572

PATIENT
  Age: 70 Year
  Sex: Female
  Weight: 96 kg

DRUGS (6)
  1. RETEPLASE (RETEPLASE) [Suspect]
     Indication: ACUTE MYOCARDIAL INFARCTION
     Dosage: 5 IU; 1X; IV
     Route: 042
     Dates: start: 20050502, end: 20050502
  2. ABICIXIMAB (ABCIXIMAB) [Suspect]
     Dosage: 12 ML; 1X; IV
     Route: 042
     Dates: start: 20050502, end: 20050502
  3. ABICIXIMAB (ABCIXIMAB) [Suspect]
     Dosage: 12 ML; 1X; IV
     Route: 042
     Dates: start: 20050502, end: 20050502
  4. ASPIRIN [Concomitant]
  5. CLOPIDOGREL [Concomitant]
  6. HEAPRIN [Concomitant]

REACTIONS (3)
  - HAEMATOCRIT DECREASED [None]
  - HAEMOGLOBIN DECREASED [None]
  - PUNCTURE SITE HAEMORRHAGE [None]
